FAERS Safety Report 7650240-3 (Version None)
Quarter: 2011Q3

REPORT INFORMATION
  Report Type: 
  Country: None (occurrence: None)
  Receive Date: 20110727
  Receipt Date: 20110711
  Transmission Date: 20111222
  Serious: Yes (Other)
  Sender: FDA-Public Use
  Company Number: 2011MA001951

PATIENT
  Age: 57 Year
  Sex: Female
  Weight: 72.5755 kg

DRUGS (28)
  1. METOCLOPRAMIDE [Suspect]
     Dosage: 10 MG; PO
     Route: 048
     Dates: start: 20080101, end: 20090801
  2. PHENERGAN HCL [Concomitant]
  3. SYNTHROID [Concomitant]
  4. FLOMAX [Concomitant]
  5. ACTONEL [Concomitant]
  6. ROZEREM [Concomitant]
  7. GABAPENTIN [Concomitant]
  8. VICODIN [Concomitant]
  9. ZOFRAN [Concomitant]
  10. AGGRENOX [Concomitant]
  11. LIPITOR [Concomitant]
  12. CYMBALTA [Concomitant]
  13. PREDNISONE [Concomitant]
  14. INDERAL LA [Concomitant]
  15. SINGULAIR [Concomitant]
  16. NORGESIC FORTE [Concomitant]
  17. CIPROFLAXACIN [Concomitant]
  18. DEPLIN [Concomitant]
  19. DOXYCYCLINE [Concomitant]
  20. FIXODENT [Concomitant]
  21. FLAGYL [Concomitant]
  22. SIMVASTATIN [Concomitant]
  23. CLINDAMYCIN [Concomitant]
  24. LEVAQUIN [Concomitant]
  25. PROMETHAZINE [Concomitant]
  26. FENTANYL [Concomitant]
  27. MIRAPEX [Concomitant]
  28. DUONEB [Concomitant]

REACTIONS (9)
  - PNEUMONIA KLEBSIELLA [None]
  - EXTRAPYRAMIDAL DISORDER [None]
  - TARDIVE DYSKINESIA [None]
  - DIARRHOEA [None]
  - BLADDER DILATATION [None]
  - CULTURE URINE POSITIVE [None]
  - DYSPHAGIA [None]
  - EMOTIONAL DISTRESS [None]
  - ANAEMIA [None]
